FAERS Safety Report 8429845 (Version 7)
Quarter: 2013Q1

REPORT INFORMATION
  Report Type: Report from Study
  Country: BR (occurrence: BR)
  Receive Date: 20120228
  Receipt Date: 20130128
  Transmission Date: 20140127
  Serious: Yes (Death, Life-Threatening, Hospitalization)
  Sender: FDA-Public Use
  Company Number: BR-JNJFOC-20120209440

PATIENT
  Age: 74 Year
  Sex: Male
  Weight: 53.1 kg

DRUGS (4)
  1. ABIRATERONE ACETATE [Suspect]
     Route: 048
  2. ABIRATERONE ACETATE [Suspect]
     Indication: PROSTATE CANCER METASTATIC
     Route: 048
     Dates: start: 20111201, end: 20120215
  3. PREDNISONE [Suspect]
     Indication: PROSTATE CANCER METASTATIC
     Route: 048
     Dates: start: 20111201, end: 20120215
  4. JURNISTA [Concomitant]
     Indication: ABDOMINAL PAIN
     Route: 065
     Dates: start: 20111124

REACTIONS (2)
  - Deep vein thrombosis [Recovered/Resolved]
  - Pneumonia [Fatal]
